FAERS Safety Report 4736395-9 (Version None)
Quarter: 2005Q3

REPORT INFORMATION
  Report Type: 
  Country: None (occurrence: None)
  Receive Date: 20050804
  Receipt Date: 20050719
  Transmission Date: 20060218
  Serious: Yes (Other)
  Sender: FDA-Public Use
  Company Number: 199906330

PATIENT
  Age: 37 Year
  Sex: Female
  Weight: 50.8029 kg

DRUGS (1)
  1. BOTOX [Suspect]
     Indication: SKIN WRINKLING
     Dosage: 22 UNITS PRN IM
     Route: 030
     Dates: start: 19990716

REACTIONS (13)
  - ASTHENIA [None]
  - BRUXISM [None]
  - CHILLS [None]
  - DEPRESSION [None]
  - DRY EYE [None]
  - ERYTHEMA [None]
  - FACIAL PAIN [None]
  - FACIAL PALSY [None]
  - HEADACHE [None]
  - IDIOSYNCRATIC DRUG REACTION [None]
  - PARAESTHESIA [None]
  - SKIN SWELLING [None]
  - STRESS [None]
